FAERS Safety Report 5672472-6 (Version None)
Quarter: 2008Q2

REPORT INFORMATION
  Report Type: 
  Country: None (occurrence: None)
  Receive Date: 20080219
  Receipt Date: 20080121
  Transmission Date: 20081010
  Serious: No
  Sender: FDA-Public Use
  Company Number: TPA2008A00092

PATIENT
  Age: 51 Year
  Sex: Male
  Weight: 74.8435 kg

DRUGS (4)
  1. ROZEREM [Suspect]
     Indication: INSOMNIA
     Dosage: 8 MG, HS, PER ORAL
     Route: 048
     Dates: start: 20080107, end: 20080110
  2. ASPIRIN [Concomitant]
  3. CALCIUM (CALCIUM) [Concomitant]
  4. ULTRAM [Concomitant]

REACTIONS (1)
  - POOR QUALITY SLEEP [None]
